FAERS Safety Report 5898486-9 (Version None)
Quarter: 2008Q3

REPORT INFORMATION
  Report Type: 
  Country: None (occurrence: None)
  Receive Date: 20080925
  Receipt Date: 20071128
  Transmission Date: 20090109
  Serious: No
  Sender: FDA-Public Use
  Company Number: A0696330A

PATIENT
  Age: 51 Year
  Sex: Female

DRUGS (5)
  1. BUPROPION HCL [Suspect]
     Indication: DEPRESSION
     Dosage: 300MG PER DAY
     Route: 048
     Dates: start: 20070901
  2. WELLBUTRIN XL [Suspect]
     Indication: DEPRESSION
     Dosage: 300MG PER DAY
     Route: 048
     Dates: start: 19970101, end: 20070901
  3. ATENOLOL [Concomitant]
  4. RANITIDINE [Concomitant]
  5. WATER PILL [Concomitant]

REACTIONS (2)
  - FALSE POSITIVE LABORATORY RESULT [None]
  - INSOMNIA [None]
